FAERS Safety Report 21992366 (Version 1)
Quarter: 2023Q1

REPORT INFORMATION
  Report Type: Spontaneous
  Country: JP (occurrence: JP)
  Receive Date: 20230215
  Receipt Date: 20230215
  Transmission Date: 20230418
  Serious: Yes (Other)
  Sender: FDA-Public Use
  Company Number: JP-BAXTER-2023BAX011607

PATIENT
  Age: 74 Year
  Sex: Male

DRUGS (3)
  1. EXTRANEAL [Suspect]
     Active Substance: CALCIUM CHLORIDE\ICODEXTRIN\MAGNESIUM CHLORIDE\SODIUM CHLORIDE\SODIUM LACTATE
     Indication: Renal failure
     Dosage: 2LX1BAG (DOSING INTERVAL NOT REPORTED)
     Route: 033
     Dates: start: 20210511
  2. REGUNEAL LCA [Suspect]
     Active Substance: CALCIUM CHLORIDE\DEXTROSE MONOHYDRATE\HYDROCHLORIC ACID\MAGNESIUM CHLORIDE\SODIUM BICARBONATE\SODIUM
     Indication: Renal failure
     Dosage: 2.5LX3BAGS (DOSING INTERVAL NOT REPORTED)
     Route: 033
     Dates: start: 20210511
  3. NIFEDIPINE [Concomitant]
     Active Substance: NIFEDIPINE
     Indication: Hypertension
     Dosage: 40MG (DOSING INTERVAL NOT REPORTED)
     Route: 048

REACTIONS (5)
  - Embolic cerebral infarction [Unknown]
  - Fall [Recovered/Resolved]
  - Contusion [Recovered/Resolved]
  - Therapy change [Unknown]
  - Dizziness [Unknown]

NARRATIVE: CASE EVENT DATE: 20221128
